FAERS Safety Report 17399874 (Version 1)
Quarter: 2020Q1

REPORT INFORMATION
  Report Type: Spontaneous
  Country: US (occurrence: US)
  Receive Date: 20200211
  Receipt Date: 20200211
  Transmission Date: 20200409
  Serious: No
  Sender: FDA-Public Use
  Company Number: US-009507513-2002USA001829

PATIENT
  Age: 42 Year
  Sex: Female

DRUGS (5)
  1. FOLLISTIM AQ [Concomitant]
     Active Substance: FOLLITROPIN
  2. PREGNYL [Concomitant]
     Active Substance: CHORIOGONADOTROPIN ALFA
  3. NOVAREL [Concomitant]
     Active Substance: CHORIOGONADOTROPIN ALFA
  4. GANIRELIX ACETATE INJECTION [Suspect]
     Active Substance: GANIRELIX ACETATE
     Indication: INFERTILITY FEMALE
     Dosage: 1 PREFILLED SYRINGE WHEN INSTRUCTED
     Route: 058
     Dates: start: 20200130
  5. LEUPROLIDE [Suspect]
     Active Substance: LEUPROLIDE

REACTIONS (1)
  - Wrong product administered [Unknown]

NARRATIVE: CASE EVENT DATE: 20200202
